FAERS Safety Report 24911401 (Version 3)
Quarter: 2025Q1

REPORT INFORMATION
  Report Type: Spontaneous
  Country: JP (occurrence: JP)
  Receive Date: 20250131
  Receipt Date: 20250211
  Transmission Date: 20250408
  Serious: Yes (Other)
  Sender: ALEXION PHARMACEUTICALS
  Company Number: JP-ASTRAZENECA-250008504_032420_P_1

PATIENT
  Age: 6 Decade
  Weight: 50 kg

DRUGS (28)
  1. TEZSPIRE [Suspect]
     Active Substance: TEZEPELUMAB-EKKO
     Indication: Asthma
     Dosage: 3 MILLIGRAM, Q4W
  2. TEZSPIRE [Suspect]
     Active Substance: TEZEPELUMAB-EKKO
     Indication: Asthma
  3. SYMBICORT [Suspect]
     Active Substance: BUDESONIDE\FORMOTEROL FUMARATE DIHYDRATE
     Indication: Asthma
     Dosage: IN THE MORNING AND EVENING
  4. FLUTICASONE FUROATE\VILANTEROL TRIFENATATE [Suspect]
     Active Substance: FLUTICASONE FUROATE\VILANTEROL TRIFENATATE
  5. FLUTICASONE FUROATE\VILANTEROL TRIFENATATE [Suspect]
     Active Substance: FLUTICASONE FUROATE\VILANTEROL TRIFENATATE
  6. XYZAL [Concomitant]
     Active Substance: LEVOCETIRIZINE DIHYDROCHLORIDE
  7. XYZAL [Concomitant]
     Active Substance: LEVOCETIRIZINE DIHYDROCHLORIDE
  8. XYZAL [Concomitant]
     Active Substance: LEVOCETIRIZINE DIHYDROCHLORIDE
  9. THEOPHYLLINE [Concomitant]
     Active Substance: THEOPHYLLINE
  10. THEOPHYLLINE [Concomitant]
     Active Substance: THEOPHYLLINE
  11. THEOPHYLLINE [Concomitant]
     Active Substance: THEOPHYLLINE
  12. FLUTICASONE FUROATE [Concomitant]
     Active Substance: FLUTICASONE FUROATE
     Route: 065
  13. FLUTICASONE FUROATE [Concomitant]
     Active Substance: FLUTICASONE FUROATE
     Route: 065
  14. HERBALS [Concomitant]
     Active Substance: HERBALS
  15. HERBALS [Concomitant]
     Active Substance: HERBALS
  16. HERBALS [Concomitant]
     Active Substance: HERBALS
  17. Constan [Concomitant]
     Route: 065
  18. Constan [Concomitant]
     Route: 065
  19. Constan [Concomitant]
     Route: 065
  20. BROMAZEPAM [Concomitant]
     Active Substance: BROMAZEPAM
  21. BROMAZEPAM [Concomitant]
     Active Substance: BROMAZEPAM
  22. BROMAZEPAM [Concomitant]
     Active Substance: BROMAZEPAM
  23. LUVOX [Concomitant]
     Active Substance: FLUVOXAMINE MALEATE
  24. LUVOX [Concomitant]
     Active Substance: FLUVOXAMINE MALEATE
  25. LUVOX [Concomitant]
     Active Substance: FLUVOXAMINE MALEATE
  26. UNSPECIFIED INGREDIENT [Concomitant]
     Active Substance: UNSPECIFIED INGREDIENT
     Route: 065
  27. VILANTEROL [Concomitant]
     Active Substance: VILANTEROL
  28. FLUTICASONE FUROATE [Concomitant]
     Active Substance: FLUTICASONE FUROATE
     Route: 065

REACTIONS (5)
  - Asthma [Unknown]
  - Hyperventilation [Recovered/Resolved]
  - Thirst [Not Recovered/Not Resolved]
  - Dysphonia [Not Recovered/Not Resolved]
  - Infection [Recovered/Resolved]
